FAERS Safety Report 9398663 (Version 1)
Quarter: 2013Q3

REPORT INFORMATION
  Report Type: Spontaneous
  Country: GB (occurrence: GB)
  Receive Date: 20130712
  Receipt Date: 20130712
  Transmission Date: 20140515
  Serious: Yes (Other)
  Sender: FDA-Public Use
  Company Number: GB-PFIZER INC-2013199823

PATIENT
  Age: 75 Year
  Sex: Female
  Weight: 100 kg

DRUGS (1)
  1. CLINDAMYCIN PHOSPHATE [Suspect]
     Indication: CELLULITIS
     Dosage: 600 MG, UNK
     Route: 042

REACTIONS (2)
  - Rash erythematous [Unknown]
  - Inflammation [Unknown]
